FAERS Safety Report 7512652-8 (Version None)
Quarter: 2011Q2

REPORT INFORMATION
  Report Type: 
  Country: None (occurrence: None)
  Receive Date: 20110525
  Receipt Date: 20110525
  Transmission Date: 20111010
  Serious: Yes (Death)
  Sender: FDA-Public Use
  Company Number: None

PATIENT
  Sex: Female
  Weight: 100.2 kg

DRUGS (10)
  1. DEODORIZED TINCTURE OF OPIUM [Concomitant]
  2. LOTREL [Concomitant]
  3. MIRALAX [Concomitant]
  4. OXYCODONE HCL [Concomitant]
  5. AV-951 (TIVOZANIB) [Suspect]
     Indication: COLORECTAL CANCER
     Dosage: 1 MG PO QD
     Route: 048
     Dates: start: 20110415, end: 20110505
  6. INSULIN GLARGINE [Concomitant]
  7. LIPITOR [Concomitant]
  8. RAD001 (EVEROLIMUS) [Suspect]
     Indication: COLORECTAL CANCER
     Dosage: 10 MG PO QD
     Route: 048
     Dates: start: 20110415, end: 20110429
  9. AMARYL [Concomitant]
  10. SYNTHROID [Concomitant]

REACTIONS (4)
  - MENTAL STATUS CHANGES [None]
  - AMMONIA INCREASED [None]
  - NEOPLASM PROGRESSION [None]
  - COLORECTAL CANCER METASTATIC [None]
